FAERS Safety Report 6166226-4 (Version None)
Quarter: 2009Q2

REPORT INFORMATION
  Report Type: 
  Country: None (occurrence: None)
  Receive Date: 20090424
  Receipt Date: 20090414
  Transmission Date: 20091009
  Serious: Yes (Hospitalization, Other)
  Sender: FDA-Public Use
  Company Number: PHHY2009DK14221

PATIENT
  Sex: Male

DRUGS (2)
  1. VOLTAREN [Suspect]
     Dosage: UNK
     Dates: start: 20070323
  2. PAMOL [Concomitant]
     Dosage: UNK
     Dates: start: 20070323, end: 20070327

REACTIONS (20)
  - ABDOMINAL PAIN [None]
  - ABSCESS DRAINAGE [None]
  - ABSCESS NECK [None]
  - AGITATION [None]
  - BENIGN LYMPH NODE NEOPLASM [None]
  - DEHYDRATION [None]
  - DRUG INTOLERANCE [None]
  - DUODENAL ULCER HAEMORRHAGE [None]
  - EPILEPSY [None]
  - FAECES DISCOLOURED [None]
  - GASTRIC PERFORATION [None]
  - HAEMATEMESIS [None]
  - HAEMOPTYSIS [None]
  - LOCAL SWELLING [None]
  - LYMPHADENECTOMY [None]
  - MALAISE [None]
  - NAUSEA [None]
  - PYREXIA [None]
  - SUTURE INSERTION [None]
  - VOMITING [None]
